FAERS Safety Report 18313248 (Version 3)
Quarter: 2020Q4

REPORT INFORMATION
  Report Type: Report from Study
  Country: KR (occurrence: KR)
  Receive Date: 20200925
  Receipt Date: 20201130
  Transmission Date: 20210113
  Serious: Yes (Hospitalization)
  Sender: FDA-Public Use
  Company Number: KR-EISAI MEDICAL RESEARCH-EC-2020-081044

PATIENT
  Age: 62 Year
  Sex: Female
  Weight: 77.3 kg

DRUGS (23)
  1. IRCODON TAB [Concomitant]
     Indication: BACK PAIN
     Route: 048
     Dates: start: 20200807, end: 20200820
  2. LENVIMA [Suspect]
     Active Substance: LENVATINIB
     Indication: HEPATOCELLULAR CARCINOMA
     Route: 048
     Dates: start: 20200722, end: 20200907
  3. DESOWEN LOTION [Concomitant]
     Indication: URTICARIA
     Route: 061
     Dates: start: 20200810, end: 20200814
  4. VEMLIDY [Concomitant]
     Active Substance: TENOFOVIR ALAFENAMIDE FUMARATE
     Indication: CHRONIC HEPATITIS B
     Route: 048
     Dates: start: 20200728
  5. SEVIKAR [Concomitant]
     Active Substance: AMLODIPINE BESYLATE\OLMESARTAN MEDOXOMIL
     Indication: HYPERTENSION
     Dosage: 1 TABLET
     Route: 048
     Dates: start: 20200805
  6. LANSTON LFDT [Concomitant]
     Active Substance: LANSOPRAZOLE
     Indication: PROPHYLAXIS
     Route: 048
     Dates: start: 20200917
  7. GASTIIN CR [Concomitant]
     Indication: PROPHYLAXIS
     Route: 048
     Dates: start: 20200928
  8. PARAMACET TAB [Concomitant]
     Indication: PROPHYLAXIS
     Route: 048
     Dates: start: 20201027
  9. LIPITOR TAB [Concomitant]
     Indication: DYSLIPIDAEMIA
     Route: 048
     Dates: start: 20200722
  10. MEGESIA SUSP [Concomitant]
     Indication: DECREASED APPETITE
     Route: 048
     Dates: start: 20200831
  11. OLMETEC TAB [Concomitant]
     Indication: HYPERTENSION
     Route: 048
     Dates: start: 20200722, end: 20200804
  12. ALDACTONE FILM COATED TAB [Concomitant]
     Indication: OEDEMA
     Route: 048
     Dates: start: 20200831
  13. LAMINA-G [Concomitant]
     Indication: PROPHYLAXIS
     Route: 048
     Dates: start: 20200928
  14. MAGMIL TAB [Concomitant]
     Indication: PROPHYLAXIS
     Route: 048
     Dates: start: 20201013
  15. HUONS DEXAMETHASONE DISODIUM PHOSPHATE INJ [Concomitant]
     Indication: URTICARIA
     Route: 041
     Dates: start: 20200810, end: 20200810
  16. STILNOX [Concomitant]
     Active Substance: ZOLPIDEM TARTRATE
     Indication: INSOMNIA
     Route: 048
     Dates: start: 20200908
  17. PLETAAL TAB [Concomitant]
     Indication: CEREBRAL ARTERY STENOSIS
     Route: 048
     Dates: start: 20190514
  18. ADIPAM TAB [Concomitant]
     Indication: URTICARIA
     Route: 048
     Dates: start: 20200810, end: 20200814
  19. NEURONTIN CAP [Concomitant]
     Indication: BACK PAIN
     Route: 048
     Dates: start: 20200807, end: 20200820
  20. DUOLAX TAB [Concomitant]
     Indication: CONSTIPATION
     Route: 048
     Dates: start: 20200831, end: 20200906
  21. LASIX TAB [Concomitant]
     Indication: OEDEMA
     Route: 048
     Dates: start: 20200831
  22. LENVIMA [Suspect]
     Active Substance: LENVATINIB
     Route: 048
     Dates: start: 20200908
  23. MUTERAN CAP [Concomitant]
     Indication: PROPHYLAXIS
     Route: 048
     Dates: start: 20200831, end: 20200916

REACTIONS (3)
  - Oedema [Recovering/Resolving]
  - Abdominal pain upper [Recovering/Resolving]
  - Gastritis [Recovered/Resolved]

NARRATIVE: CASE EVENT DATE: 202008
